FAERS Safety Report 4903151-8 (Version None)
Quarter: 2006Q1

REPORT INFORMATION
  Report Type: 
  Country: None (occurrence: None)
  Receive Date: 20060207
  Receipt Date: 20031002
  Transmission Date: 20060701
  Serious: Yes (Death, Hospitalization, Disabling)
  Sender: FDA-Public Use
  Company Number: US-MERCK-0310USA00338

PATIENT
  Age: 55 Year
  Sex: Male

DRUGS (5)
  1. VIOXX [Suspect]
     Indication: BACK PAIN
     Route: 048
     Dates: start: 20010613, end: 20010904
  2. VIOXX [Suspect]
     Indication: ARTHRITIS
     Route: 048
     Dates: start: 20010613, end: 20010904
  3. FIORINAL [Concomitant]
     Route: 065
  4. [THERAPY UNSPECIFIED] [Concomitant]
     Route: 065
  5. NEURONTIN [Concomitant]
     Indication: PAIN
     Route: 048

REACTIONS (9)
  - ARTERIOSCLEROSIS [None]
  - CARDIAC ARREST [None]
  - CARDIOMEGALY [None]
  - CHOLELITHIASIS [None]
  - DERMAL CYST [None]
  - EMPHYSEMA [None]
  - HEPATOMEGALY [None]
  - HYPERLIPIDAEMIA [None]
  - PULMONARY CONGESTION [None]
